FAERS Safety Report 4507405-9 (Version None)
Quarter: 2004Q4

REPORT INFORMATION
  Report Type: 
  Country: None (occurrence: None)
  Receive Date: 20041118
  Receipt Date: 20041108
  Transmission Date: 20050328
  Serious: Yes (Other)
  Sender: FDA-Public Use
  Company Number: 2004064631

PATIENT
  Age: 32 Year
  Sex: Male

DRUGS (8)
  1. LIPITOR [Suspect]
     Indication: BLOOD CHOLESTEROL INCREASED
     Dosage: 10 TO 20 MG (1 IN 1 D), ORAL
     Route: 048
     Dates: start: 20020701, end: 20040807
  2. LOPID [Suspect]
     Indication: ILL-DEFINED DISORDER
     Dosage: ORAL
     Route: 048
     Dates: end: 20040401
  3. DILANTIN [Suspect]
     Indication: CONVULSION
     Dates: start: 20020101
  4. FENOFIBRATE [Suspect]
     Indication: BLOOD TRIGLYCERIDES INCREASED
     Dosage: ORAL
     Route: 048
     Dates: start: 20030101, end: 20030101
  5. ROSUVASTATIN (ROSUVASTATIN) [Suspect]
     Indication: LOW DENSITY LIPOPROTEIN INCREASED
     Dosage: 10 MG (10 MG,), ORAL
     Route: 048
     Dates: start: 20040301
  6. ATENOLOL [Concomitant]
  7. RAMIPRIL [Concomitant]
  8. ASPIRIN [Concomitant]

REACTIONS (7)
  - ALANINE AMINOTRANSFERASE INCREASED [None]
  - ASPARTATE AMINOTRANSFERASE INCREASED [None]
  - BLOOD CREATINE PHOSPHOKINASE INCREASED [None]
  - CONVULSION [None]
  - CORONARY ARTERY DISEASE [None]
  - CORONARY ARTERY OCCLUSION [None]
  - INFARCTION [None]
